FAERS Safety Report 8832118 (Version 1)
Quarter: 2012Q4

REPORT INFORMATION
  Report Type: Report from Study
  Country: FR (occurrence: FR)
  Receive Date: 20121009
  Receipt Date: 20121009
  Transmission Date: 20130627
  Serious: Yes (Hospitalization)
  Sender: FDA-Public Use
  Company Number: FR-ROCHE-1137175

PATIENT
  Age: 53 Year
  Sex: Female

DRUGS (8)
  1. ROACTEMRA [Suspect]
     Indication: RHEUMATOID ARTHRITIS
     Dosage: Dose: 500 mg
     Route: 042
     Dates: start: 20110908
  2. ROACTEMRA [Suspect]
     Dosage: Dose: 500 mg
     Route: 042
     Dates: start: 20111005
  3. ROACTEMRA [Suspect]
     Dosage: Dose: 500 mg
     Route: 042
     Dates: start: 20111104
  4. ROACTEMRA [Suspect]
     Dosage: Dose: 500 mg
     Route: 042
     Dates: start: 20111201
  5. ROACTEMRA [Suspect]
     Dosage: Dose: 500 mg
     Route: 042
     Dates: start: 20111229
  6. ROACTEMRA [Suspect]
     Dosage: Dose: 500 mg
     Route: 042
     Dates: start: 20120209
  7. ROACTEMRA [Suspect]
     Dosage: Dose: 500 mg
     Route: 042
     Dates: start: 20120314
  8. METHOTREXATE [Concomitant]
     Indication: RHEUMATOID ARTHRITIS
     Route: 065
     Dates: start: 2007

REACTIONS (6)
  - Rheumatoid arthritis [Recovered/Resolved]
  - Nausea [Recovered/Resolved]
  - Bronchopneumonia [Recovered/Resolved]
  - Gastroenteritis [Recovered/Resolved]
  - Rash erythematous [Recovered/Resolved]
  - Prurigo [Recovered/Resolved]
